FAERS Safety Report 17459592 (Version 1)
Quarter: 2020Q1

REPORT INFORMATION
  Report Type: Spontaneous
  Country: US (occurrence: US)
  Receive Date: 20200225
  Receipt Date: 20200225
  Transmission Date: 20200409
  Serious: No
  Sender: FDA-Public Use
  Company Number: US-ROCHE-2398479

PATIENT
  Age: 3 Year
  Sex: Female

DRUGS (2)
  1. NUTROPIN AQ [Suspect]
     Active Substance: SOMATROPIN
     Dosage: NUTROPIN AQ NUSPIN 10 INJ
     Route: 058
     Dates: start: 201904
  2. NUTROPIN AQ [Suspect]
     Active Substance: SOMATROPIN
     Indication: HYPOPITUITARISM
     Dosage: NUTROPIN AQ NUSPIN 10 INJ
     Route: 058
     Dates: start: 20160801

REACTIONS (1)
  - Injection site bruising [Unknown]

NARRATIVE: CASE EVENT DATE: 20190529
